APPROVED DRUG PRODUCT: PROBENECID
Active Ingredient: PROBENECID
Strength: 500MG
Dosage Form/Route: TABLET;ORAL
Application: A217020 | Product #001 | TE Code: AB
Applicant: RISING PHARMA HOLDINGS INC
Approved: Nov 20, 2023 | RLD: No | RS: No | Type: RX